FAERS Safety Report 8553542-1 (Version None)
Quarter: 2012Q2

REPORT INFORMATION
  Report Type: 
  Country: None (occurrence: None)
  Receive Date: 20120417
  Receipt Date: 20120111
  Transmission Date: 20120825
  Serious: Yes (Life-Threatening, Hospitalization)
  Sender: FDA-Public Use
  Company Number: 2012-000080

PATIENT
  Age: 30 Year
  Sex: Female
  Weight: 89.8 kg

DRUGS (3)
  1. ALL OTHER THERAPEUTIC PRODUCTS [Concomitant]
  2. LOESTRIN 24 FE [Suspect]
     Indication: CONTRACEPTION
     Dosage: 1000/20 UG, ORAL
     Route: 048
     Dates: start: 20060101, end: 20060101
  3. LOESTRIN 24 FE [Suspect]
     Indication: DYSMENORRHOEA
     Dosage: 1000/20 UG, ORAL
     Route: 048
     Dates: start: 20060101, end: 20060101

REACTIONS (4)
  - THROMBOSIS [None]
  - CHEST PAIN [None]
  - PULMONARY EMBOLISM [None]
  - PANIC DISORDER [None]
